FAERS Safety Report 11694355 (Version 1)
Quarter: 2015Q4

REPORT INFORMATION
  Report Type: Spontaneous
  Country: US (occurrence: US)
  Receive Date: 20151103
  Receipt Date: 20151103
  Transmission Date: 20160304
  Serious: No
  Sender: FDA-Public Use
  Company Number: US-JNJFOC-20151019172

PATIENT
  Sex: Female
  Weight: 60.33 kg

DRUGS (7)
  1. DURAGESIC [Suspect]
     Active Substance: FENTANYL
     Indication: ENDOMETRIOSIS
     Route: 062
  2. AYGESTIN [Concomitant]
     Active Substance: NORETHINDRONE ACETATE
     Indication: ENDOMETRIOSIS
     Route: 048
  3. DURAGESIC [Suspect]
     Active Substance: FENTANYL
     Indication: FIBROMYALGIA
     Route: 062
  4. DURAGESIC [Suspect]
     Active Substance: FENTANYL
     Indication: ENDOMETRIOSIS
     Route: 062
  5. DURAGESIC [Suspect]
     Active Substance: FENTANYL
     Indication: FIBROMYALGIA
     Route: 062
  6. DURAGESIC [Suspect]
     Active Substance: FENTANYL
     Indication: ENDOMETRIOSIS
     Route: 062
  7. DURAGESIC [Suspect]
     Active Substance: FENTANYL
     Indication: FIBROMYALGIA
     Route: 062

REACTIONS (2)
  - Drug ineffective [Unknown]
  - Incorrect drug administration rate [Unknown]
